FAERS Safety Report 18717200 (Version 1)
Quarter: 2021Q1

REPORT INFORMATION
  Report Type: Report from Study
  Country: US (occurrence: US)
  Receive Date: 20210108
  Receipt Date: 20210108
  Transmission Date: 20210419
  Serious: Yes (Other)
  Sender: FDA-Public Use
  Company Number: US-MYLANLABS-2021M1000337

PATIENT
  Age: 23 Year
  Sex: Female

DRUGS (2)
  1. RITUXIMAB. [Concomitant]
     Active Substance: RITUXIMAB
     Indication: GLOMERULONEPHRITIS MINIMAL LESION
     Dosage: 1000 MILLIGRAM, BIWEEKLY IV RITUXIMAB 1000MG SPACED 2 WEEKS APART
     Route: 042
  2. PREDNISONE. [Suspect]
     Active Substance: PREDNISONE
     Indication: GLOMERULONEPHRITIS MINIMAL LESION
     Dosage: UNK
     Route: 065

REACTIONS (1)
  - Steroid dependence [Unknown]
